FAERS Safety Report 21933040 (Version 1)
Quarter: 2023Q1

REPORT INFORMATION
  Report Type: Report from Study
  Country: BR (occurrence: None)
  Receive Date: 20230131
  Receipt Date: 20230131
  Transmission Date: 20230418
  Serious: Yes (Other)
  Sender: FDA-Public Use
  Company Number: BR-Merck Healthcare KGaA-9380012

PATIENT
  Sex: Female

DRUGS (1)
  1. SAIZEN [Suspect]
     Active Substance: SOMATROPIN
     Indication: Growth disorder
     Route: 058
     Dates: start: 20201103

REACTIONS (3)
  - Oropharyngeal surgery [Recovered/Resolved]
  - Bursitis [Recovering/Resolving]
  - Injection site reaction [Unknown]
